FAERS Safety Report 20833358 (Version 2)
Quarter: 2022Q4

REPORT INFORMATION
  Report Type: Spontaneous
  Country: FR (occurrence: FR)
  Receive Date: 20220516
  Receipt Date: 20221215
  Transmission Date: 20230112
  Serious: Yes (Hospitalization)
  Sender: FDA-Public Use
  Company Number: None

PATIENT
  Age: 31 Year
  Sex: Male
  Weight: 61 kg

DRUGS (1)
  1. PREGABALIN [Suspect]
     Active Substance: PREGABALIN
     Indication: Neuropathy peripheral
     Dosage: 300 MILLIGRAM DAILY; 150 MG MORNING AND EVENING
     Route: 048
     Dates: start: 20220414, end: 20220419

REACTIONS (1)
  - Oedematous pancreatitis [Recovered/Resolved]

NARRATIVE: CASE EVENT DATE: 20220415
